FAERS Safety Report 8456376-1 (Version None)
Quarter: 2012Q2

REPORT INFORMATION
  Report Type: 
  Country: None (occurrence: None)
  Receive Date: 20120621
  Receipt Date: 20120614
  Transmission Date: 20120825
  Serious: Yes (Hospitalization)
  Sender: FDA-Public Use
  Company Number: TW-GLAXOSMITHKLINE-B0809216A

PATIENT
  Age: 82 Year
  Sex: Female
  Weight: 49.4 kg

DRUGS (8)
  1. AVANDIA [Suspect]
     Indication: DIABETES MELLITUS
     Dosage: 4MG PER DAY
     Route: 065
     Dates: start: 20070308, end: 20070912
  2. GLYBURIDE [Concomitant]
  3. GLIPIZIDE [Concomitant]
     Dosage: 2TAB TWICE PER DAY
     Dates: start: 20070308
  4. GLUCOMIN [Concomitant]
     Indication: BLOOD GLUCOSE
     Dosage: 1TAB TWICE PER DAY
  5. LASIX [Concomitant]
  6. INSULIN [Concomitant]
  7. PANTOPRAZOLE [Concomitant]
  8. ACTOS [Concomitant]
     Dosage: 1TAB PER DAY

REACTIONS (3)
  - OEDEMA PERIPHERAL [None]
  - DYSPNOEA [None]
  - GASTROINTESTINAL HAEMORRHAGE [None]
